FAERS Safety Report 6189240-1 (Version None)
Quarter: 2009Q2

REPORT INFORMATION
  Report Type: 
  Country: None (occurrence: None)
  Receive Date: 20090513
  Receipt Date: 20090504
  Transmission Date: 20091009
  Serious: Yes (Other)
  Sender: FDA-Public Use
  Company Number: PHEH2008US08951

PATIENT
  Sex: Female

DRUGS (11)
  1. ZOMETA [Suspect]
     Dosage: 4MG MONTHLY
     Dates: start: 20020101, end: 20050101
  2. ZOMETA [Suspect]
     Dosage: UNK
     Dates: start: 20070701, end: 20070801
  3. AREDIA [Suspect]
     Dosage: MONTHLY
     Dates: start: 19980101
  4. CHEMOTHERAPEUTICS NOS [Concomitant]
     Indication: METASTASES TO BONE
     Dosage: UNK
     Dates: start: 19980801
  5. AMODEX [Concomitant]
  6. COUMADIN [Concomitant]
  7. METHADONE HCL [Concomitant]
  8. RADIATION [Concomitant]
     Indication: METASTASES TO BONE
  9. HERCEPTIN [Concomitant]
     Dosage: WEEKLY
     Dates: end: 20050101
  10. CARBOPLATIN [Concomitant]
  11. FASLODEX [Concomitant]

REACTIONS (35)
  - ANAEMIA [None]
  - ANHEDONIA [None]
  - ANXIETY [None]
  - BACK PAIN [None]
  - BONE DEBRIDEMENT [None]
  - BONE DISORDER [None]
  - BONE PAIN [None]
  - BREAST CANCER METASTATIC [None]
  - CENTRAL VENOUS CATHETER REMOVAL [None]
  - CENTRAL VENOUS CATHETERISATION [None]
  - DENTAL CARIES [None]
  - DENTURE WEARER [None]
  - DISABILITY [None]
  - EMPHYSEMA [None]
  - EPIGASTRIC DISCOMFORT [None]
  - GASTRITIS [None]
  - IMPAIRED HEALING [None]
  - INJURY [None]
  - LIVER FUNCTION TEST ABNORMAL [None]
  - MALIGNANT NEOPLASM PROGRESSION [None]
  - MASTICATION DISORDER [None]
  - NAUSEA [None]
  - NECK PAIN [None]
  - OSTEOARTHRITIS [None]
  - OSTEONECROSIS [None]
  - PAIN [None]
  - PANCYTOPENIA [None]
  - PARAESTHESIA [None]
  - SENSITIVITY OF TEETH [None]
  - THROMBOCYTOPENIA [None]
  - TOOTH EXTRACTION [None]
  - TOOTHACHE [None]
  - VISION BLURRED [None]
  - VOMITING [None]
  - WEIGHT DECREASED [None]
